FAERS Safety Report 23822404 (Version 6)
Quarter: 2024Q3

REPORT INFORMATION
  Report Type: Spontaneous
  Country: US (occurrence: US)
  Receive Date: 20240506
  Receipt Date: 20240729
  Transmission Date: 20241017
  Serious: No
  Sender: PFIZER
  Company Number: US-PFIZER INC-202400098832

PATIENT
  Age: 74 Year
  Sex: Male
  Weight: 68.481 kg

DRUGS (23)
  1. ELIQUIS [Suspect]
     Active Substance: APIXABAN
     Indication: Atrial fibrillation
     Dosage: 5 MG, 2X/DAY
     Route: 048
     Dates: start: 201508
  2. VYNDAMAX [Suspect]
     Active Substance: TAFAMIDIS
     Indication: Familial amyloidosis
     Dosage: TAKE 61 MG BY MOUTH DAILY
     Route: 048
     Dates: start: 20230423
  3. TIKOSYN [Suspect]
     Active Substance: DOFETILIDE
     Indication: Atrial fibrillation
     Dosage: 250 UG, 2X/DAY
     Route: 048
     Dates: start: 20240229
  4. TIKOSYN [Suspect]
     Active Substance: DOFETILIDE
     Indication: Atrial fibrillation
  5. TESSALON [Suspect]
     Active Substance: BENZONATATE
     Indication: Cough
     Dosage: TAKE 1 CAPSULE (200 MG) BY MOUTH 3 TIMES DAILY AS NEEDED FOR COUGH.
     Route: 048
  6. HYDROCORTISONE [Suspect]
     Active Substance: HYDROCORTISONE\HYDROCORTISONE ACETATE
     Dosage: UNK
  7. KLOR-CON M10 [Suspect]
     Active Substance: POTASSIUM CHLORIDE
     Dosage: TAKE 1 TABLET DAILY, EXTENDED RELEASE
  8. DIPROSONE [Suspect]
     Active Substance: BETAMETHASONE DIPROPIONATE
     Dosage: UNK
  9. ASTELIN [Suspect]
     Active Substance: AZELASTINE HYDROCHLORIDE
     Dosage: ADMINISTER 2 SPRAYS IN EACH NOSTRIL 2 TIMES DAILY
  10. DOVONEX [Suspect]
     Active Substance: CALCIPOTRIENE
     Dosage: UNK
  11. LOTRIMIN (CLOTRIMAZOLE) [Suspect]
     Active Substance: CLOTRIMAZOLE
     Dosage: APPLY TO THE AFFECTED AREA TOPICALLY TWICE DAILY.
  12. FLONASE [Suspect]
     Active Substance: FLUTICASONE PROPIONATE
     Dosage: ADMINISTER 2 SPRAYS IN EACH NOSTRIL DAILY
  13. NIZORAL [Suspect]
     Active Substance: KETOCONAZOLE
     Dosage: UNK
  14. PRILOSEC [Suspect]
     Active Substance: OMEPRAZOLE MAGNESIUM
     Indication: Gastrooesophageal reflux disease
     Dosage: 1 CAPSULE (20 BY MOUTH 1 TIME DAILY AS NEEDED FOR OTHER
  15. CRESTOR [Suspect]
     Active Substance: ROSUVASTATIN CALCIUM
     Indication: Blood cholesterol
     Dosage: TAKE 1 TABLET DAILY BEDTIME
  16. CIALIS [Suspect]
     Active Substance: TADALAFIL
     Indication: Erectile dysfunction
     Dosage: TAKE ONE TABLET 20 MG BY MOUTH 1 TIMES DAILY AS NEEDED
     Route: 048
  17. DEMADEX [Suspect]
     Active Substance: TORSEMIDE
     Dosage: TAKE 61 MG BY MOUTH DAILY
     Route: 048
  18. DESYREL [Suspect]
     Active Substance: TRAZODONE HYDROCHLORIDE
     Dosage: TAKE 1 TAB DAILY IN BEDTIME
  19. RETIN-A [Suspect]
     Active Substance: TRETINOIN
     Dosage: UNK
  20. KENALOG [Suspect]
     Active Substance: TRIAMCINOLONE ACETONIDE
     Dosage: UNK
  21. MINERALS\VITAMINS [Suspect]
     Active Substance: MINERALS\VITAMINS
     Dosage: TAKE 1 TABLET BY MOUTH DAILY
     Route: 048
  22. TORSEMIDE [Concomitant]
     Active Substance: TORSEMIDE
     Indication: Diuretic therapy
     Dosage: 20 MG, DAILY
  23. POTASSIUM CHLORIDE [Concomitant]
     Active Substance: POTASSIUM CHLORIDE
     Indication: Hypokalaemia
     Dosage: 10 MG, 2X/DAY

REACTIONS (1)
  - Blood pressure increased [Recovered/Resolved]

NARRATIVE: CASE EVENT DATE: 20240101
